FAERS Safety Report 8978572 (Version 2)
Quarter: 2013Q1

REPORT INFORMATION
  Report Type: Spontaneous
  Country: US (occurrence: US)
  Receive Date: 20121221
  Receipt Date: 20130129
  Transmission Date: 20140127
  Serious: Yes (Hospitalization)
  Sender: FDA-Public Use
  Company Number: US-BIOGENIDEC-2012BI061079

PATIENT
  Age: 38 Year
  Sex: Female

DRUGS (1)
  1. TYSABRI [Suspect]
     Indication: MULTIPLE SCLEROSIS
     Route: 042
     Dates: start: 20100122, end: 20121029

REACTIONS (7)
  - Rotator cuff syndrome [Recovered/Resolved]
  - Multiple sclerosis relapse [Recovered/Resolved]
  - Musculoskeletal pain [Recovered/Resolved]
  - Exostosis [Recovered/Resolved]
  - Procedural pain [Not Recovered/Not Resolved]
  - Urinary incontinence [Not Recovered/Not Resolved]
  - Upper limb fracture [Recovered/Resolved]
